FAERS Safety Report 5249802-2 (Version None)
Quarter: 2007Q1

REPORT INFORMATION
  Report Type: 
  Country: None (occurrence: None)
  Receive Date: 20070228
  Receipt Date: 20070221
  Transmission Date: 20070707
  Serious: Yes (Death, Hospitalization)
  Sender: FDA-Public Use
  Company Number: 2007PK00334

PATIENT
  Age: 577 Day
  Sex: Female

DRUGS (6)
  1. FOSCAVIR [Suspect]
     Indication: CYTOMEGALOVIRUS INFECTION
     Route: 042
     Dates: start: 20061129, end: 20061227
  2. ANTI-THYMOCYTE GLOBULIN-FRESENIUS [Suspect]
     Indication: BONE MARROW CONDITIONING REGIMEN
     Route: 042
     Dates: start: 20061226, end: 20061228
  3. FLUDARABIN [Suspect]
     Indication: BONE MARROW CONDITIONING REGIMEN
     Route: 042
     Dates: start: 20061224, end: 20061227
  4. CYCLOPHOSPHAMIDE [Concomitant]
     Indication: BONE MARROW CONDITIONING REGIMEN
     Route: 042
     Dates: start: 20061114, end: 20061115
  5. BUSILVEX [Concomitant]
     Indication: BONE MARROW CONDITIONING REGIMEN
     Route: 042
     Dates: start: 20061110, end: 20061113
  6. ANTI-THYMOCYTE GLOBULIN-FRESENIUS [Concomitant]
     Route: 042
     Dates: start: 20061114, end: 20061116

REACTIONS (4)
  - GRAFT DYSFUNCTION [None]
  - PNEUMONIA [None]
  - PNEUMOTHORAX [None]
  - RESPIRATORY FAILURE [None]
